FAERS Safety Report 20298587 (Version 1)
Quarter: 2022Q1

REPORT INFORMATION
  Report Type: Report from Study
  Country: US (occurrence: US)
  Receive Date: 20220105
  Receipt Date: 20220105
  Transmission Date: 20220424
  Serious: Yes (Other)
  Sender: FDA-Public Use
  Company Number: US-MYLANLABS-2022M1000340

PATIENT

DRUGS (2)
  1. CIDOFOVIR [Suspect]
     Active Substance: CIDOFOVIR
     Indication: Necrotising retinitis
     Dosage: UNK
     Route: 065
  2. CIDOFOVIR [Suspect]
     Active Substance: CIDOFOVIR
     Indication: Herpes simplex

REACTIONS (1)
  - Drug ineffective [Unknown]
